FAERS Safety Report 8486613-9 (Version None)
Quarter: 2012Q3

REPORT INFORMATION
  Report Type: 
  Country: None (occurrence: None)
  Receive Date: 20120703
  Receipt Date: 20120621
  Transmission Date: 20120928
  Serious: Yes (Other)
  Sender: FDA-Public Use
  Company Number: DE-ELI_LILLY_AND_COMPANY-DE201206007174

PATIENT
  Sex: Male

DRUGS (1)
  1. STRATTERA [Suspect]
     Indication: ATTENTION DEFICIT/HYPERACTIVITY DISORDER
     Dosage: 35 MG, UNK
     Route: 048
     Dates: start: 20110615

REACTIONS (4)
  - NAUSEA [None]
  - BLOOD BILIRUBIN INCREASED [None]
  - JAUNDICE [None]
  - VOMITING [None]
